FAERS Safety Report 14125631 (Version 1)
Quarter: 2017Q4

REPORT INFORMATION
  Report Type: Spontaneous
  Country: GB (occurrence: GB)
  Receive Date: 20171025
  Receipt Date: 20171025
  Transmission Date: 20180321
  Serious: Yes (Death, Hospitalization)
  Sender: FDA-Public Use
  Company Number: GB-TEVA-817924ACC

PATIENT
  Age: 76 Year
  Sex: Male
  Weight: 89 kg

DRUGS (4)
  1. FLUCONAZOLE. [Suspect]
     Active Substance: FLUCONAZOLE
     Indication: ORAL CANDIDIASIS
     Dates: start: 20170620, end: 201706
  2. VOTRIENT [Suspect]
     Active Substance: PAZOPANIB HYDROCHLORIDE
     Indication: RENAL CANCER METASTATIC
     Dosage: 800 MILLIGRAM DAILY;
     Route: 048
     Dates: start: 201703, end: 20170622
  3. HEPARIN LOW MOLECULAR WEIGHT UNSPECIFIED [Concomitant]
     Active Substance: UNSPECIFIED INGREDIENT
     Indication: PULMONARY EMBOLISM
     Dates: end: 201706
  4. ENOXAPARIN [Concomitant]
     Active Substance: ENOXAPARIN
     Indication: PULMONARY EMBOLISM

REACTIONS (19)
  - Thrombocytopenia [Unknown]
  - Inhibitory drug interaction [Unknown]
  - Dizziness [Unknown]
  - Pulmonary necrosis [Unknown]
  - Acute hepatic failure [Not Recovered/Not Resolved]
  - Oedema peripheral [Unknown]
  - Decreased appetite [Unknown]
  - Gallbladder disorder [Unknown]
  - Pneumonia [Unknown]
  - Hepatotoxicity [Fatal]
  - Dyspnoea [Unknown]
  - Tinnitus [Unknown]
  - Agitation [Unknown]
  - Drug monitoring procedure not performed [Unknown]
  - Balance disorder [Unknown]
  - Malaise [Unknown]
  - Cerebral infarction [Unknown]
  - Jaundice [Unknown]
  - Lactic acidosis [Unknown]

NARRATIVE: CASE EVENT DATE: 20170620
